FAERS Safety Report 9035820 (Version 1)
Quarter: 2013Q1

REPORT INFORMATION
  Report Type: Report from Study
  Country: US (occurrence: US)
  Receive Date: 20130129
  Receipt Date: 20130129
  Transmission Date: 20140127
  Serious: No
  Sender: FDA-Public Use
  Company Number: US-ABBOTT-12P-163-0925167-00

PATIENT
  Age: 16 None
  Sex: Female
  Weight: 79.45 kg

DRUGS (2)
  1. HUMIRA 40 MG/0.8 ML PEN [Suspect]
     Indication: PSORIASIS
     Dates: start: 201202
  2. UNKNOWN MEDICATION [Concomitant]
     Indication: CONTRACEPTION

REACTIONS (6)
  - Injection site vesicles [Recovered/Resolved]
  - Injection site pain [Unknown]
  - Incorrect dose administered [Unknown]
  - Injection site pain [Recovered/Resolved]
  - Device malfunction [Unknown]
  - Injection site urticaria [Unknown]
